FAERS Safety Report 8202534-0 (Version None)
Quarter: 2012Q1

REPORT INFORMATION
  Report Type: 
  Country: None (occurrence: None)
  Receive Date: 20120312
  Receipt Date: 20120306
  Transmission Date: 20120608
  Serious: Yes (Death, Other)
  Sender: FDA-Public Use
  Company Number: US-PURDUE-USA-2011-0071046

PATIENT
  Sex: Male
  Weight: 63.492 kg

DRUGS (2)
  1. OXYCONTIN [Suspect]
     Indication: PAIN
  2. METHADON HCL TAB [Concomitant]
     Indication: PRODUCT USED FOR UNKNOWN INDICATION

REACTIONS (4)
  - PAIN [None]
  - DISABILITY [None]
  - MULTIPLE DRUG OVERDOSE [None]
  - DRUG INTERACTION [None]
